FAERS Safety Report 7893623-9 (Version None)
Quarter: 2011Q4

REPORT INFORMATION
  Report Type: 
  Country: None (occurrence: None)
  Receive Date: 20111104
  Receipt Date: 20110606
  Transmission Date: 20120403
  Serious: Yes (Hospitalization)
  Sender: FDA-Public Use
  Company Number: FR-GLAXOSMITHKLINE-B0728107A

PATIENT
  Sex: Male

DRUGS (2)
  1. PAZOPANIB [Suspect]
     Indication: NEOPLASM
     Dosage: 600MG PER DAY
     Route: 048
     Dates: start: 20110413
  2. BEVACIZUMAB [Suspect]
     Indication: NEOPLASM
     Dosage: 7.5MGK EVERY TWO WEEKS
     Route: 042
     Dates: start: 20110427

REACTIONS (1)
  - BONE PAIN [None]
